FAERS Safety Report 17523283 (Version 2)
Quarter: 2020Q3

REPORT INFORMATION
  Report Type: Report from Study
  Country: US (occurrence: US)
  Receive Date: 20200310
  Receipt Date: 20200819
  Transmission Date: 20201102
  Serious: Yes (Hospitalization, Other)
  Sender: FDA-Public Use
  Company Number: NVSC2019US087256

PATIENT
  Age: 7 Month
  Sex: Female
  Weight: 11.1 kg

DRUGS (24)
  1. PULMOZYME [Concomitant]
     Active Substance: DORNASE ALFA
     Indication: LUNG DISORDER
     Dosage: UNK
     Route: 065
     Dates: start: 20181217, end: 20190312
  2. ATROVENT [Concomitant]
     Active Substance: IPRATROPIUM BROMIDE
     Indication: LUNG DISORDER
     Dosage: 0.03 %, BID
     Route: 065
     Dates: start: 20181217, end: 20190508
  3. PREDNISONE. [Concomitant]
     Active Substance: PREDNISONE
     Indication: LUNG DISORDER
     Dosage: 1.35 MG/KG, QD
     Route: 048
     Dates: start: 20190114, end: 20190312
  4. ZOLGENSMA [Suspect]
     Active Substance: ONASEMNOGENE ABEPARVOVEC-XIOI
     Indication: SPINAL MUSCULAR ATROPHY
     Dosage: 1.10^14 VG, SINGLE
     Route: 042
     Dates: start: 20190115
  5. MUCOMYST [Concomitant]
     Active Substance: ACETYLCYSTEINE
     Indication: LUNG DISORDER
     Dosage: UNK
     Route: 065
     Dates: start: 20181231, end: 20190117
  6. LASIX [Concomitant]
     Active Substance: FUROSEMIDE
     Dosage: 10 MG, QD
     Route: 048
     Dates: start: 20190303, end: 20190504
  7. PREDNISOLONE. [Concomitant]
     Active Substance: PREDNISOLONE
     Indication: PROPHYLAXIS
     Dosage: 1 MG/KG, QD
     Route: 065
     Dates: start: 20190114, end: 20190312
  8. BOTOX [Concomitant]
     Active Substance: ONABOTULINUMTOXINA
     Indication: PRODUCT USED FOR UNKNOWN INDICATION
     Dosage: UNK
     Route: 065
     Dates: start: 20190122, end: 20190122
  9. SPIRONOLACTONE. [Concomitant]
     Active Substance: SPIRONOLACTONE
     Dosage: 2.50 MG
     Route: 048
     Dates: start: 20190417, end: 20190422
  10. STEROIDS [Concomitant]
     Active Substance: UNSPECIFIED INGREDIENT
     Dosage: UNK
     Route: 065
     Dates: start: 20190913, end: 20190915
  11. ZOLGENSMA [Suspect]
     Active Substance: ONASEMNOGENE ABEPARVOVEC-XIOI
     Dosage: UNK
     Route: 065
  12. ALBUTEROL. [Concomitant]
     Active Substance: ALBUTEROL
     Dosage: UNK
     Route: 065
     Dates: start: 20190509
  13. LASIX [Concomitant]
     Active Substance: FUROSEMIDE
     Indication: DYSPNOEA
     Dosage: 10 MG, QD
     Route: 048
     Dates: start: 20181217, end: 20190508
  14. LASIX [Concomitant]
     Active Substance: FUROSEMIDE
     Dosage: 10 MG, QD
     Route: 048
     Dates: start: 20190512, end: 20190516
  15. GLYCOPYRROLATE. [Concomitant]
     Active Substance: GLYCOPYRROLATE
     Indication: PRODUCT USED FOR UNKNOWN INDICATION
     Dosage: 210 UG
     Route: 065
     Dates: start: 20181220, end: 20181228
  16. PULMOZYME [Concomitant]
     Active Substance: DORNASE ALFA
     Dosage: UNK
     Route: 065
     Dates: start: 20190910, end: 20190914
  17. DIURIL [Concomitant]
     Active Substance: CHLOROTHIAZIDE
     Dosage: 70 MG, Q12H
     Route: 048
     Dates: start: 20190516
  18. SPIRONOLACTONE. [Concomitant]
     Active Substance: SPIRONOLACTONE
     Dosage: 2.50 MG
     Route: 065
     Dates: start: 20190423, end: 20190504
  19. ALBUTEROL. [Concomitant]
     Active Substance: ALBUTEROL
     Indication: LUNG DISORDER
     Dosage: UNK
     Route: 065
     Dates: start: 20181229, end: 20190508
  20. DIURIL [Concomitant]
     Active Substance: CHLOROTHIAZIDE
     Indication: DYSPNOEA
     Dosage: 70 MG, BID
     Route: 048
     Dates: start: 20181217
  21. SPIRONOLACTONE. [Concomitant]
     Active Substance: SPIRONOLACTONE
     Indication: DYSPNOEA
     Dosage: 5.25 MG, Q12H
     Route: 048
     Dates: start: 20190303, end: 20190417
  22. DECADRON [Concomitant]
     Active Substance: DEXAMETHASONE
     Indication: PRODUCT USED FOR UNKNOWN INDICATION
     Dosage: 2 MG, Q6H
     Route: 042
     Dates: start: 20190106, end: 20190106
  23. STEROIDS [Concomitant]
     Active Substance: UNSPECIFIED INGREDIENT
     Indication: LUNG DISORDER
     Dosage: UNK
     Route: 065
     Dates: start: 20190106, end: 20190312
  24. STEROIDS [Concomitant]
     Active Substance: UNSPECIFIED INGREDIENT
     Dosage: UNK
     Route: 065
     Dates: start: 20190705, end: 20190705

REACTIONS (2)
  - Pneumonia moraxella [Recovered/Resolved]
  - Pneumonia [Not Recovered/Not Resolved]

NARRATIVE: CASE EVENT DATE: 20190208
